FAERS Safety Report 18264869 (Version 2)
Quarter: 2020Q3

REPORT INFORMATION
  Report Type: Spontaneous
  Country: BR (occurrence: BR)
  Receive Date: 20200914
  Receipt Date: 20200918
  Transmission Date: 20201103
  Serious: Yes (Other)
  Sender: FDA-Public Use
  Company Number: BR-PFIZER INC-2020349313

PATIENT
  Age: 94 Year
  Sex: Female
  Weight: 44 kg

DRUGS (8)
  1. VITFORTE [Concomitant]
  2. OMEGA 3 [FISH OIL] [Concomitant]
     Active Substance: FISH OIL
     Dosage: UNK, 2X/DAY IN THE MORNING AND AT NOON
  3. CENTRUM MULHER [Concomitant]
     Active Substance: VITAMINS
     Dosage: UNK
  4. OSCAL [CALCITRIOL] [Concomitant]
     Indication: OSTEOPOROSIS
     Dosage: UNK
  5. DOXYCYCLINE. [Suspect]
     Active Substance: DOXYCYCLINE
     Indication: TONSILLITIS
     Dosage: 2 DF, DAILY
     Dates: start: 20200908, end: 20200909
  6. DOXYCYCLINE. [Suspect]
     Active Substance: DOXYCYCLINE
     Indication: OROPHARYNGEAL PAIN
  7. IMECAP HAIR [Concomitant]
     Indication: ALOPECIA
  8. DOXYCYCLINE. [Suspect]
     Active Substance: DOXYCYCLINE
     Indication: BREATH ODOUR

REACTIONS (6)
  - Abdominal discomfort [Recovered/Resolved]
  - Diarrhoea [Recovered/Resolved]
  - Vomiting [Recovered/Resolved]
  - Malaise [Recovered/Resolved]
  - Macular degeneration [Unknown]
  - Wrong technique in product usage process [Unknown]

NARRATIVE: CASE EVENT DATE: 20200908
